FAERS Safety Report 9902835 (Version 1)
Quarter: 2014Q1

REPORT INFORMATION
  Report Type: Spontaneous
  Country: DE (occurrence: DE)
  Receive Date: 20140217
  Receipt Date: 20140217
  Transmission Date: 20141002
  Serious: Yes (Congenital Anomaly)
  Sender: FDA-Public Use
  Company Number: GXKR2014DE000896

PATIENT
  Age: 1 Day
  Sex: Male
  Weight: 3.03 kg

DRUGS (3)
  1. METOHEXAL [Suspect]
     Indication: HYPERTENSION
     Dosage: 47.5 [MG/D ]
     Route: 064
     Dates: start: 20120219, end: 20121117
  2. FOLIO [Concomitant]
     Indication: PROPHYLAXIS OF NEURAL TUBE DEFECT
     Dosage: 0.4 [MG/D ]
     Route: 064
     Dates: start: 20120219, end: 20121117
  3. INFLUENZA VACCINE [Concomitant]
     Indication: IMMUNISATION
     Dosage: UNK UKN, UNK
     Route: 064

REACTIONS (2)
  - Fallot^s tetralogy [Not Recovered/Not Resolved]
  - Atrial septal defect [Not Recovered/Not Resolved]
